FAERS Safety Report 5296450-4 (Version None)
Quarter: 2007Q2

REPORT INFORMATION
  Report Type: 
  Country: None (occurrence: None)
  Receive Date: 20070413
  Receipt Date: 20070403
  Transmission Date: 20071010
  Serious: Yes (Hospitalization, Other)
  Sender: FDA-Public Use
  Company Number: HQWYE544104APR07

PATIENT
  Age: 26 Year
  Sex: Male

DRUGS (7)
  1. ARTANE [Suspect]
     Dosage: 15 MG
  2. ARTANE [Suspect]
     Dosage: ^TAKEN IRREGULARLY ACCORDING TO AVAILABILITY^
  3. LIBRIUM [Concomitant]
     Indication: DRUG DEPENDENCE
     Dosage: DOSE AND FREQUENCY UNSPECIFIED
     Dates: start: 19940401, end: 19951021
  4. ELAVIL [Concomitant]
     Indication: DRUG DEPENDENCE
     Dosage: DOSE AND FREQUENCY UNSPECIFIED
     Dates: start: 19940401, end: 19951021
  5. LARGACTIL [Concomitant]
     Dosage: DOSE AND FREQUENCY UNSPECIFIED
     Dates: start: 19940401, end: 19951021
  6. CANNABIS [Concomitant]
     Dosage: FREQUENCY UNSPECIFIED
  7. NOZINAN [Concomitant]
     Indication: DRUG DEPENDENCE
     Dosage: DOSE AND FREQUENCY UNSPECIFIED
     Dates: start: 19940401, end: 19951021

REACTIONS (2)
  - DRUG DEPENDENCE [None]
  - STEVENS-JOHNSON SYNDROME [None]
